FAERS Safety Report 26096959 (Version 2)
Quarter: 2025Q4

REPORT INFORMATION
  Report Type: Spontaneous
  Country: US (occurrence: US)
  Receive Date: 20251127
  Receipt Date: 20251217
  Transmission Date: 20260118
  Serious: No
  Sender: UROGEN PHARMA
  Company Number: US-UROGEN PHARMA LTD.-2025-UGN-000239

PATIENT

DRUGS (2)
  1. ZUSDURI [Suspect]
     Active Substance: MITOMYCIN
     Indication: Bladder transitional cell carcinoma
     Dosage: 75 MILLIGRAM, ONCE A WEEK (INSTILLATION)
     Route: 043
     Dates: start: 20251112, end: 20251112
  2. ZUSDURI [Suspect]
     Active Substance: MITOMYCIN
     Dosage: 75 MILLIGRAM, ONCE A WEEK (INSTILLATION)
     Route: 043
     Dates: start: 20251119, end: 20251119

REACTIONS (4)
  - Rectal haemorrhage [Unknown]
  - Catheter site injury [Unknown]
  - Haematuria [Unknown]
  - Fatigue [Unknown]

NARRATIVE: CASE EVENT DATE: 20251112
